FAERS Safety Report 4893100-3 (Version None)
Quarter: 2005Q4

REPORT INFORMATION
  Report Type: 
  Country: None (occurrence: None)
  Receive Date: 20051220
  Receipt Date: 20050419
  Transmission Date: 20060501
  Serious: Yes (Hospitalization)
  Sender: FDA-Public Use
  Company Number: 200510796BWH

PATIENT
  Age: 61 Year
  Sex: Male
  Weight: 99.7913 kg

DRUGS (4)
  1. TRASYLOL [Suspect]
     Indication: AORTIC ANEURYSM REPAIR
     Dosage: INTRAVENOUS
     Route: 042
     Dates: start: 20050419
  2. TRASYLOL [Suspect]
     Indication: CORONARY ARTERY SURGERY
     Dosage: INTRAVENOUS
     Route: 042
     Dates: start: 20050419
  3. PREOP ANTIBIOTICS [Concomitant]
  4. AMIODARONE [Concomitant]

REACTIONS (4)
  - ANAPHYLACTIC REACTION [None]
  - HYPOTENSION [None]
  - RASH [None]
  - RASH GENERALISED [None]
